FAERS Safety Report 7594166-2 (Version None)
Quarter: 2011Q3

REPORT INFORMATION
  Report Type: 
  Country: None (occurrence: None)
  Receive Date: 20110706
  Receipt Date: 20110629
  Transmission Date: 20111222
  Serious: Yes (Other)
  Sender: FDA-Public Use
  Company Number: US-PFIZER INC-2011146248

PATIENT
  Sex: Male

DRUGS (3)
  1. GEODON [Suspect]
     Dosage: 160 MG, UNK
  2. TOPAMAX [Suspect]
     Dosage: 200 MG, 2X/DAY
  3. RISPERIDONE [Suspect]
     Dosage: 50 MG Q 2 WEEKS
     Route: 030

REACTIONS (2)
  - ORTHOSTATIC HYPOTENSION [None]
  - SCHIZOPHRENIA, PARANOID TYPE [None]
